FAERS Safety Report 10424714 (Version 1)
Quarter: 2014Q3

REPORT INFORMATION
  Report Type: Report from Study
  Country: BR (occurrence: BR)
  Receive Date: 20140902
  Receipt Date: 20140902
  Transmission Date: 20150326
  Serious: Yes (Death, Other)
  Sender: FDA-Public Use
  Company Number: PHHY2014BR110469

PATIENT
  Sex: Male
  Weight: 65 kg

DRUGS (4)
  1. FORASEQ [Suspect]
     Active Substance: BUDESONIDE\FORMOTEROL FUMARATE
     Indication: LYMPHOMA
     Dosage: UNK UKN, UNK
     Route: 055
     Dates: start: 20140823
  2. FORASEQ [Suspect]
     Active Substance: BUDESONIDE\FORMOTEROL FUMARATE
     Indication: RESPIRATORY DISORDER
  3. ROXFLAN [Concomitant]
     Active Substance: AMLODIPINE BESYLATE
     Indication: BLOOD PRESSURE
     Dosage: UNK UKN, UNK
  4. LOSARTAN [Concomitant]
     Active Substance: LOSARTAN
     Indication: BLOOD PRESSURE
     Dosage: UNK UKN, UNK

REACTIONS (4)
  - Cardiac arrest [Unknown]
  - Respiratory failure [Unknown]
  - Dyspnoea [Unknown]
  - Lymphoma [Fatal]
